FAERS Safety Report 20206759 (Version 1)
Quarter: 2021Q4

REPORT INFORMATION
  Report Type: Spontaneous
  Country: JP (occurrence: JP)
  Receive Date: 20211220
  Receipt Date: 20211220
  Transmission Date: 20220303
  Serious: Yes (Other)
  Sender: FDA-Public Use
  Company Number: JP-AZURITY PHARMACEUTICALS, INC.-2021AZY00134

PATIENT
  Age: 4 Month
  Sex: Female

DRUGS (2)
  1. VANCOMYCIN HYDROCHLORIDE [Suspect]
     Active Substance: VANCOMYCIN HYDROCHLORIDE
     Indication: Device related infection
     Dosage: 16 MG/KG/DOSE AT 10 MG/ML VIA PICC THROUGH A DSFV CANNULATION IN THE LEFT GREAT SAPHENOUS VEIN BEHIN
     Route: 042
  2. VANCOMYCIN HYDROCHLORIDE [Suspect]
     Active Substance: VANCOMYCIN HYDROCHLORIDE
     Indication: Staphylococcal infection
     Dosage: 19 MG/KG/DOSE AT 5 MG/ML VIA THE PERIPHERAL VENOUS CATHETER INSIDE OF THE LEFT ANKLE OVER 60 MINUTES
     Route: 042

REACTIONS (1)
  - Extravasation [Recovering/Resolving]
